FAERS Safety Report 5746681-1 (Version None)
Quarter: 2008Q2

REPORT INFORMATION
  Report Type: 
  Country: None (occurrence: None)
  Receive Date: 20080522
  Receipt Date: 20080519
  Transmission Date: 20081010
  Serious: Yes (Hospitalization)
  Sender: FDA-Public Use
  Company Number: US-AVENTIS-200811832US

PATIENT
  Sex: Male
  Weight: 74.54 kg

DRUGS (7)
  1. DDAVP [Suspect]
     Dosage: DOSE: 1 PUFF AM + PM
     Dates: start: 19910101
  2. ANALGESICS [Concomitant]
     Dosage: DOSE: UNK
  3. ATARAX [Concomitant]
  4. ZOLOFT [Concomitant]
  5. GROWTH HORMONE THERAPY [Concomitant]
     Dosage: DOSE: UNK
  6. OXYCODONE HCL [Concomitant]
     Indication: BONE PAIN
  7. FLURBIPROFEN [Concomitant]
     Dosage: DOSE: UNK

REACTIONS (5)
  - CHILLS [None]
  - OFF LABEL USE [None]
  - OVERDOSE [None]
  - PALLOR [None]
  - POISONING [None]
